FAERS Safety Report 22321060 (Version 2)
Quarter: 2023Q2

REPORT INFORMATION
  Report Type: Report from Study
  Country: EG (occurrence: EG)
  Receive Date: 20230515
  Receipt Date: 20230626
  Transmission Date: 20230722
  Serious: Yes (Hospitalization, Other)
  Sender: FDA-Public Use
  Company Number: EG-002147023-NVSC2023EG110259

PATIENT
  Age: 20 Year
  Sex: Female

DRUGS (8)
  1. HYRIMOZ [Suspect]
     Active Substance: ADALIMUMAB-ADAZ
     Indication: Psoriasis
     Dosage: 40 MG (2 PENS ONCE PER DAY FOR 2 DAYS. THEN ONE PEN PER WEEK)
     Route: 058
     Dates: start: 202209, end: 20230430
  2. HYRIMOZ [Suspect]
     Active Substance: ADALIMUMAB-ADAZ
     Indication: Rheumatoid arthritis
     Dosage: UNK (4 PREFILLED SYRINGES)
     Route: 065
     Dates: start: 20230619
  3. HYRIMOZ [Suspect]
     Active Substance: ADALIMUMAB-ADAZ
     Indication: Hidradenitis
     Dosage: UNK (2 PREFILLED SYRINGES) (26 JUN 2023)
     Route: 065
  4. HYRIMOZ [Suspect]
     Active Substance: ADALIMUMAB-ADAZ
     Dosage: UNK, QW (1 PREFILLED SYRINGE)
     Route: 065
  5. OSPEN [Concomitant]
     Indication: Antibiotic therapy
     Dosage: UNK, QD (STARTED 4 YEARS AGO)
     Route: 065
  6. MYOFEN [Concomitant]
     Indication: Antiinflammatory therapy
     Dosage: UNK UNK, QD (2 TO 3 TIMES PER DAY, STARTED 3 YEARS AGO)
     Route: 065
  7. MYOFEN [Concomitant]
     Indication: Back pain
  8. MYOFEN [Concomitant]
     Indication: Chondropathy

REACTIONS (14)
  - Abscess [Recovered/Resolved]
  - Heart rate increased [Not Recovered/Not Resolved]
  - Chondropathy [Not Recovered/Not Resolved]
  - Back pain [Not Recovered/Not Resolved]
  - Dry eye [Not Recovered/Not Resolved]
  - Ocular hypertension [Not Recovered/Not Resolved]
  - Anaemia [Unknown]
  - Red blood cell sedimentation rate increased [Unknown]
  - White blood cell count increased [Unknown]
  - Microbiology test abnormal [Unknown]
  - C-reactive protein increased [Unknown]
  - Blood pressure increased [Unknown]
  - Drug ineffective [Unknown]
  - Eye disorder [Not Recovered/Not Resolved]

NARRATIVE: CASE EVENT DATE: 20220901
